FAERS Safety Report 11030372 (Version 11)
Quarter: 2016Q4

REPORT INFORMATION
  Report Type: Report from Study
  Country: BR (occurrence: BR)
  Receive Date: 20150415
  Receipt Date: 20161118
  Transmission Date: 20170206
  Serious: Yes (Death, Hospitalization, Other)
  Sender: FDA-Public Use
  Company Number: PHHY2014BR143591

PATIENT
  Age: 71 Year
  Sex: Male
  Weight: 77 kg

DRUGS (13)
  1. SANDOSTATIN LAR DEPOT [Suspect]
     Active Substance: OCTREOTIDE ACETATE
     Indication: HEAD AND NECK CANCER
  2. CENTRUM [Concomitant]
     Active Substance: VITAMINS
     Indication: ASTHENIA
     Dosage: QD (AFTER LUNCH)
     Route: 065
  3. SANDOSTATIN LAR DEPOT [Suspect]
     Active Substance: OCTREOTIDE ACETATE
     Indication: BONE CANCER
  4. AFINITOR [Suspect]
     Active Substance: EVEROLIMUS
     Indication: LUNG NEOPLASM MALIGNANT
  5. AFINITOR [Suspect]
     Active Substance: EVEROLIMUS
     Indication: HEAD AND NECK CANCER
  6. SANDOSTATIN LAR DEPOT [Suspect]
     Active Substance: OCTREOTIDE ACETATE
     Indication: HEPATIC CANCER
     Dosage: 30 MG, QMO
     Route: 030
     Dates: start: 2013, end: 2016
  7. HIDROCLOROTIAZIDE [Concomitant]
     Active Substance: HYDROCHLOROTHIAZIDE
     Indication: LIMB DISCOMFORT
     Dosage: 1 DF, QD
     Route: 065
  8. DIOSMIN SDU [Concomitant]
     Active Substance: DIOSMIN
     Indication: LIMB DISCOMFORT
     Dosage: 1 DF, QD (1 ENVELOPE)
     Route: 065
  9. AFINITOR [Suspect]
     Active Substance: EVEROLIMUS
     Indication: HEPATIC CANCER
     Dosage: 10 MG, QD (1 TABLET)
     Route: 048
     Dates: start: 201608
  10. AFINITOR [Suspect]
     Active Substance: EVEROLIMUS
     Indication: RENAL CANCER
  11. SANDOSTATIN LAR DEPOT [Suspect]
     Active Substance: OCTREOTIDE ACETATE
     Indication: RENAL CANCER
  12. SANDOSTATIN LAR DEPOT [Suspect]
     Active Substance: OCTREOTIDE ACETATE
     Indication: LUNG NEOPLASM MALIGNANT
  13. AFINITOR [Suspect]
     Active Substance: EVEROLIMUS
     Indication: BONE CANCER

REACTIONS (31)
  - Abasia [Unknown]
  - Dysentery [Unknown]
  - Confusional state [Unknown]
  - Concomitant disease aggravated [Recovering/Resolving]
  - Product use issue [Unknown]
  - Drug intolerance [Unknown]
  - Death [Fatal]
  - Dysuria [Unknown]
  - Neuritis [Recovering/Resolving]
  - Swelling face [Unknown]
  - Blood pressure increased [Unknown]
  - Anal incontinence [Unknown]
  - Metastasis [Unknown]
  - Muscular weakness [Recovered/Resolved]
  - Back pain [Recovering/Resolving]
  - Dysphonia [Unknown]
  - Inflammation [Unknown]
  - Urinary retention [Unknown]
  - Neoplasm malignant [Recovering/Resolving]
  - Gait disturbance [Recovering/Resolving]
  - Lymphatic disorder [Unknown]
  - Pain in extremity [Recovered/Resolved]
  - Weight increased [Unknown]
  - Sciatica [Recovering/Resolving]
  - Influenza [Unknown]
  - Weight decreased [Unknown]
  - Peripheral swelling [Recovering/Resolving]
  - Drug ineffective [Unknown]
  - Swelling [Unknown]
  - Injection site pain [Recovered/Resolved]
  - Malignant neoplasm progression [Unknown]

NARRATIVE: CASE EVENT DATE: 2013
